FAERS Safety Report 20126262 (Version 1)
Quarter: 2021Q4

REPORT INFORMATION
  Report Type: Spontaneous
  Country: ES (occurrence: ES)
  Receive Date: 20211129
  Receipt Date: 20211129
  Transmission Date: 20220304
  Serious: Yes (Hospitalization)
  Sender: FDA-Public Use
  Company Number: None

PATIENT
  Age: 60 Year
  Sex: Female

DRUGS (4)
  1. VORICONAZOLE [Suspect]
     Active Substance: VORICONAZOLE
     Indication: Candida infection
     Dosage: 200 MILLIGRAM, QD, (CADA 24 HORAS)
     Route: 048
     Dates: start: 20210831, end: 20210902
  2. FUROSEMIDE [Concomitant]
     Active Substance: FUROSEMIDE
     Indication: Localised oedema
     Dosage: UNK, (40MG CADA 12HORAS)
     Route: 048
     Dates: start: 20210625
  3. LEVOFLOXACINO                      /01278901/ [Concomitant]
     Dosage: 500 MILLIGRAM, BID, (500MG CADA 12 HORAS)
     Route: 048
     Dates: start: 20210718
  4. LINEZOLID KERN PHARMA [Concomitant]
     Indication: Abdominal infection
     Dosage: 600 MILLIGRAM, (600MG CADA 12 HORAS )
     Route: 048
     Dates: start: 20210825

REACTIONS (2)
  - Confusional state [Recovered/Resolved]
  - Delirium [Recovered/Resolved]

NARRATIVE: CASE EVENT DATE: 20210901
